FAERS Safety Report 14346285 (Version 4)
Quarter: 2019Q4

REPORT INFORMATION
  Report Type: Report from Study
  Country: FR (occurrence: FR)
  Receive Date: 20180103
  Receipt Date: 20191025
  Transmission Date: 20200122
  Serious: Yes (Death, Hospitalization, Other)
  Sender: FDA-Public Use
  Company Number: FR-PFIZER INC-2018001178

PATIENT
  Age: 85 Year
  Sex: Female
  Weight: 60 kg

DRUGS (9)
  1. BRENTUXIMAB VEDOTIN [Suspect]
     Active Substance: BRENTUXIMAB VEDOTIN
     Dosage: 70 MG, UNK
     Dates: start: 20160330
  2. KARDEGIC [Suspect]
     Active Substance: ASPIRIN DL-LYSINE
     Dosage: 160 MG, UNK
  3. OXALIPLATIN. [Concomitant]
     Active Substance: OXALIPLATIN
     Indication: HODGKIN^S DISEASE
     Dosage: UNK
     Dates: start: 20160830, end: 20170216
  4. RITUXIMAB. [Concomitant]
     Active Substance: RITUXIMAB
     Indication: HODGKIN^S DISEASE
     Dosage: UNK
     Dates: start: 20160830, end: 20170216
  5. BRENTUXIMAB VEDOTIN [Suspect]
     Active Substance: BRENTUXIMAB VEDOTIN
     Indication: HODGKIN^S DISEASE
     Dosage: 110 MG, UNK
     Route: 042
     Dates: start: 20151217, end: 20160330
  6. ONDANSETRON HYDROCHLORIDE. [Suspect]
     Active Substance: ONDANSETRON HYDROCHLORIDE
     Indication: ANTIBIOTIC THERAPY
     Dosage: 8 MG, UNK
  7. GEMCITABINE. [Concomitant]
     Active Substance: GEMCITABINE
     Indication: HODGKIN^S DISEASE
     Dosage: UNK
     Dates: start: 20160830, end: 20170216
  8. TAZOCILLINE [Suspect]
     Active Substance: PIPERACILLIN SODIUM\TAZOBACTAM SODIUM
     Dosage: UNK
  9. LEVOTHYROXINE. [Suspect]
     Active Substance: LEVOTHYROXINE
     Indication: HYPOTHYROIDISM
     Dosage: 25 UG, UNK

REACTIONS (18)
  - Nausea [Fatal]
  - Abdominal pain [Fatal]
  - Cardio-respiratory arrest [Fatal]
  - Tachycardia [Fatal]
  - Asthenia [Fatal]
  - Rash [Fatal]
  - Weight decreased [Fatal]
  - Cardiac murmur [Fatal]
  - Toxicity to various agents [Fatal]
  - Hyperthermia [Fatal]
  - Neutropenia [Fatal]
  - Lung disorder [Fatal]
  - Hodgkin^s disease [Fatal]
  - Neuropathy peripheral [Fatal]
  - Hyperhidrosis [Fatal]
  - Vomiting [Fatal]
  - Disease progression [Fatal]
  - Respiratory distress [Fatal]

NARRATIVE: CASE EVENT DATE: 2016
